FAERS Safety Report 8095092-5 (Version None)
Quarter: 2012Q1

REPORT INFORMATION
  Report Type: 
  Country: None (occurrence: None)
  Receive Date: 20120131
  Receipt Date: 20120120
  Transmission Date: 20120608
  Serious: Yes (Death)
  Sender: FDA-Public Use
  Company Number: GB-BAXTER-2012BH000829

PATIENT
  Sex: Male

DRUGS (3)
  1. TISSEEL VH [Suspect]
     Indication: HAEMORRHAGE
     Route: 065
  2. FLOSEAL MATRIX HEMOSTATIC SEALANT (DEVICE) [Suspect]
     Indication: HAEMORRHAGE
     Route: 065
     Dates: start: 20120109, end: 20120109
  3. EVICEL [Suspect]
     Indication: HAEMORRHAGE
     Route: 065
     Dates: start: 20120109, end: 20120109

REACTIONS (2)
  - CARDIAC ARREST [None]
  - AIR EMBOLISM [None]
